FAERS Safety Report 7547392-2 (Version None)
Quarter: 2011Q2

REPORT INFORMATION
  Report Type: 
  Country: None (occurrence: None)
  Receive Date: 20110614
  Receipt Date: 20110613
  Transmission Date: 20111010
  Serious: Yes (Other)
  Sender: FDA-Public Use
  Company Number: US-PFIZER INC-2011128719

PATIENT
  Age: 58 Year
  Sex: Male

DRUGS (13)
  1. TOLTERODINE [Concomitant]
     Dosage: UNK, DAILY
  2. SENNA [Concomitant]
     Dosage: UNK, DAILY
  3. WARFARIN [Concomitant]
     Dosage: UNK, DAILY
  4. HYDROCHLOROTHIAZIDE [Concomitant]
     Dosage: UNK, DAILY
  5. KETAMINE HCL [Interacting]
     Dosage: 100 MG, UNK
  6. OMEPRAZOLE [Concomitant]
     Dosage: UNK, DAILY
  7. FERROUS SULFATE [Concomitant]
     Dosage: UNK, DAILY
  8. ALBUTEROL SULFATE AUTOHALER [Concomitant]
     Dosage: UNK, DAILY
  9. ZOLPIDEM [Concomitant]
     Dosage: UNK, DAILY
  10. BUDESONIDE/FORMOTEROL FUMARATE [Concomitant]
     Dosage: UNK, DAILY
  11. GABAPENTIN [Suspect]
     Dosage: 900 MG, 3X/DAY
  12. METFORMIN [Concomitant]
     Dosage: UNK, DAILY
  13. LISINOPRIL [Concomitant]
     Dosage: UNK, DAILY

REACTIONS (6)
  - AREFLEXIA [None]
  - SENSORY DISTURBANCE [None]
  - DRUG INTERACTION [None]
  - DISSOCIATIVE DISORDER [None]
  - UNRESPONSIVE TO STIMULI [None]
  - MOTOR DYSFUNCTION [None]
